FAERS Safety Report 17434474 (Version 2)
Quarter: 2020Q1

REPORT INFORMATION
  Report Type: Spontaneous
  Country: IN (occurrence: IN)
  Receive Date: 20200219
  Receipt Date: 20200219
  Transmission Date: 20200409
  Serious: Yes (Other)
  Sender: FDA-Public Use
  Company Number: IN-PFIZER INC-2019094978

PATIENT
  Age: 51 Year
  Sex: Male

DRUGS (6)
  1. PRIMOSA [Concomitant]
     Dosage: 1 DF, 2X/DAY (BD)
  2. ELTROXIN [Concomitant]
     Active Substance: LEVOTHYROXINE
     Dosage: 25 UG, 1X/DAY
  3. CRIZALK [Suspect]
     Active Substance: CRIZOTINIB
     Indication: LUNG ADENOCARCINOMA STAGE IV
     Dosage: 250 MG, 2X/DAY
     Route: 048
     Dates: start: 20170929
  4. RAZO D [Concomitant]
     Dosage: 1X/DAY
  5. SOS [Concomitant]
     Dosage: UNK
  6. LASIX [Concomitant]
     Active Substance: FUROSEMIDE
     Dosage: 1/2 , 1X/DAY

REACTIONS (9)
  - Cerebral ischaemia [Unknown]
  - Oedema peripheral [Unknown]
  - Blood thyroid stimulating hormone increased [Unknown]
  - Neoplasm progression [Unknown]
  - Oedema [Unknown]
  - Diarrhoea [Unknown]
  - Weight increased [Unknown]
  - Demyelination [Unknown]
  - Dyspepsia [Unknown]

NARRATIVE: CASE EVENT DATE: 20191225
